FAERS Safety Report 5162322-9 (Version None)
Quarter: 2006Q4

REPORT INFORMATION
  Report Type: 
  Country: None (occurrence: None)
  Receive Date: 20061130
  Receipt Date: 20061120
  Transmission Date: 20070319
  Serious: Yes (Hospitalization)
  Sender: FDA-Public Use
  Company Number: GR-ABBOTT-06P-066-0350851-00

PATIENT
  Age: 3 Year
  Sex: Female

DRUGS (2)
  1. ZECLAREN [Suspect]
     Indication: RESPIRATORY TRACT INFECTION
     Dosage: 250MG/5ML
     Route: 048
     Dates: start: 20061001, end: 20061001
  2. SERETIDE [Concomitant]
     Indication: ASTHMA
     Route: 055

REACTIONS (2)
  - DEHYDRATION [None]
  - VOMITING [None]
